FAERS Safety Report 12179386 (Version 1)
Quarter: 2016Q1

REPORT INFORMATION
  Report Type: Spontaneous
  Country: US (occurrence: US)
  Receive Date: 20160314
  Receipt Date: 20160314
  Transmission Date: 20160526
  Serious: No
  Sender: FDA-Public Use
  Company Number: US-ELI_LILLY_AND_COMPANY-US201602005529

PATIENT
  Age: 73 Year
  Sex: Male

DRUGS (4)
  1. CETUXIMAB [Suspect]
     Active Substance: CETUXIMAB
     Dosage: UNK
     Route: 065
     Dates: start: 20160203
  2. CETUXIMAB [Suspect]
     Active Substance: CETUXIMAB
     Indication: COLON CANCER
  3. FOLFIRI [Suspect]
     Active Substance: FLUOROURACIL\IRINOTECAN\LEUCOVORIN
     Indication: COLON CANCER
  4. NEUROTIN                           /00949202/ [Concomitant]
     Active Substance: ACETYLCARNITINE HYDROCHLORIDE
     Indication: PRODUCT USED FOR UNKNOWN INDICATION

REACTIONS (1)
  - Rash [Not Recovered/Not Resolved]

NARRATIVE: CASE EVENT DATE: 20160215
